FAERS Safety Report 8976050 (Version 3)
Quarter: 2013Q1

REPORT INFORMATION
  Report Type: Spontaneous
  Country: US (occurrence: US)
  Receive Date: 20121217
  Receipt Date: 20130329
  Transmission Date: 20140127
  Serious: Yes (Other)
  Sender: FDA-Public Use
  Company Number: US-TARO-2012P1066460

PATIENT
  Age: 68 Year
  Sex: Male
  Weight: 88.45 kg

DRUGS (8)
  1. WARFARIN SODIUM TABLETS USP 5MG [Suspect]
     Indication: ATRIAL FIBRILLATION
     Route: 048
     Dates: start: 1997
  2. WARFARIN SODIUM TABLETS USP 5MG [Suspect]
     Indication: ATRIAL FIBRILLATION
     Route: 048
     Dates: start: 1997
  3. PLAVIX [Suspect]
     Dates: start: 20110613
  4. CRESTOR [Concomitant]
     Route: 048
     Dates: start: 20120118
  5. LORAZEPAM [Concomitant]
     Route: 048
     Dates: start: 20120409
  6. LEXAPRO [Concomitant]
     Route: 048
     Dates: start: 20120413
  7. AMBIEN [Concomitant]
     Route: 048
  8. OXYCODONE ACETAMINOPHEN 10-650 MG [Concomitant]
     Route: 048

REACTIONS (36)
  - International normalised ratio fluctuation [Not Recovered/Not Resolved]
  - Fall [Recovered/Resolved]
  - Chronic obstructive pulmonary disease [Not Recovered/Not Resolved]
  - Haemorrhage [Recovered/Resolved]
  - Dyspnoea [Recovered/Resolved]
  - Rib fracture [Recovered/Resolved]
  - Drug interaction [Not Recovered/Not Resolved]
  - Facial bones fracture [Recovered/Resolved]
  - Arthralgia [Recovered/Resolved]
  - Nasal septum deviation [Recovered/Resolved]
  - Excoriation [Recovered/Resolved]
  - Cyanosis [Not Recovered/Not Resolved]
  - Deafness [Unknown]
  - Tinnitus [Unknown]
  - Organic erectile dysfunction [Unknown]
  - Skin disorder [Unknown]
  - Umbilical hernia [Unknown]
  - Skin cancer [Unknown]
  - Type V hyperlipidaemia [Unknown]
  - Pulmonary embolism [Unknown]
  - Coronary artery disease [Unknown]
  - Benign prostatic hyperplasia [Unknown]
  - Hypoxia [Unknown]
  - Pulmonary fibrosis [Unknown]
  - Rhonchi [Unknown]
  - Chest pain [Unknown]
  - Wheezing [Unknown]
  - Contusion [Unknown]
  - Emotional distress [Unknown]
  - Painful respiration [Unknown]
  - Headache [Unknown]
  - Head injury [Unknown]
  - Sinusitis [Unknown]
  - Aortic arteriosclerosis [Unknown]
  - Spinal osteoarthritis [Unknown]
  - Osteoarthritis [Unknown]
